FAERS Safety Report 15954480 (Version 2)
Quarter: 2019Q1

REPORT INFORMATION
  Report Type: Spontaneous
  Country: KR (occurrence: KR)
  Receive Date: 20190212
  Receipt Date: 20190220
  Transmission Date: 20190417
  Serious: Yes (Death, Hospitalization, Other)
  Sender: FDA-Public Use
  Company Number: KR-009507513-1902KOR003929

PATIENT
  Sex: Female

DRUGS (9)
  1. SODIUM CHLORIDE. [Concomitant]
     Active Substance: SODIUM CHLORIDE
     Dosage: QUANTITY 1 PER 3 DAYS
     Dates: start: 20190102, end: 20190117
  2. PAN B COMP [Concomitant]
     Dosage: QUANTITY 1 PER 9 DAYS
     Dates: start: 20181231, end: 20190111
  3. KEYTRUDA [Suspect]
     Active Substance: PEMBROLIZUMAB
     Indication: BILE DUCT CANCER
     Dosage: UNK
     Dates: start: 201901, end: 201901
  4. MUCOSTEN [Concomitant]
     Dosage: QUANTITY 1 PER 38 DAYS
     Dates: start: 20181211, end: 20190117
  5. HEPARIN SODIUM. [Concomitant]
     Active Substance: HEPARIN SODIUM
     Dosage: QUANTITY 1 PER 12 DAYS
     Dates: start: 20181224, end: 20190118
  6. SODIUM CHLORIDE. [Concomitant]
     Active Substance: SODIUM CHLORIDE
     Dosage: QUANTITY 1 PER 2 DAYS
     Dates: start: 20190117, end: 20190117
  7. SODIUM CHLORIDE. [Concomitant]
     Active Substance: SODIUM CHLORIDE
     Dosage: QUANTITY 1 PER 2 DAYS
     Dates: start: 20181224, end: 20190117
  8. DEXTROSE. [Concomitant]
     Active Substance: DEXTROSE
     Dosage: QUANTITY 1 PER 15 DAYS
     Dates: start: 20181223, end: 20190117
  9. MVH INJECTION [Concomitant]
     Dosage: QUANTITY 1 PER 6 DAYS
     Dates: start: 20181223, end: 20190117

REACTIONS (4)
  - Multiple organ dysfunction syndrome [Fatal]
  - Product use in unapproved indication [Unknown]
  - Malignant neoplasm progression [Fatal]
  - Adverse event [Unknown]

NARRATIVE: CASE EVENT DATE: 2019
